FAERS Safety Report 7984342-9 (Version None)
Quarter: 2011Q4

REPORT INFORMATION
  Report Type: 
  Country: None (occurrence: None)
  Receive Date: 20111216
  Receipt Date: 20111207
  Transmission Date: 20120403
  Serious: Yes (Hospitalization)
  Sender: FDA-Public Use
  Company Number: DK-JNJFOC-20111204081

PATIENT
  Sex: Female
  Weight: 47.99 kg

DRUGS (18)
  1. PREDNISONE TAB [Suspect]
     Route: 048
     Dates: start: 20110912
  2. NEUPOGEN [Suspect]
     Indication: DIFFUSE LARGE B-CELL LYMPHOMA
     Route: 058
     Dates: start: 20110907
  3. METOCLOPRAMIDE [Concomitant]
     Route: 065
     Dates: end: 20110915
  4. PREDNISONE TAB [Suspect]
     Route: 048
     Dates: start: 20110901
  5. SULFAMETHOXAZOLE [Concomitant]
     Route: 065
     Dates: end: 20110915
  6. DOXORUBICIN HCL [Suspect]
     Indication: DIFFUSE LARGE B-CELL LYMPHOMA
     Route: 042
     Dates: start: 20110906
  7. VINCRISTINE [Suspect]
     Indication: DIFFUSE LARGE B-CELL LYMPHOMA
     Route: 042
     Dates: start: 20110906
  8. COTRIM [Concomitant]
     Route: 065
  9. VALACYCLOVIR [Concomitant]
     Route: 065
     Dates: end: 20110915
  10. METFORMIN HCL [Concomitant]
     Route: 065
     Dates: start: 20110908, end: 20110915
  11. POLYETHYLENE GLYCOL [Concomitant]
     Route: 065
     Dates: start: 20110901, end: 20110915
  12. RITUXIMAB [Suspect]
     Indication: DIFFUSE LARGE B-CELL LYMPHOMA
     Route: 065
     Dates: start: 20110906
  13. PREDNISONE TAB [Suspect]
     Route: 048
     Dates: start: 20110911
  14. CYCLOPHOSPHAMIDE [Suspect]
     Indication: DIFFUSE LARGE B-CELL LYMPHOMA
     Route: 042
     Dates: start: 20110906
  15. ESOMEPRAZOLE MAGNESIUM [Concomitant]
     Route: 065
     Dates: start: 20090101, end: 20110915
  16. PREDNISONE TAB [Suspect]
     Indication: DIFFUSE LARGE B-CELL LYMPHOMA
     Route: 048
     Dates: start: 20110913
  17. CARBASALATE CALCIUM [Concomitant]
     Route: 065
     Dates: start: 20000101, end: 20110915
  18. GRANISETRON [Concomitant]
     Route: 065
     Dates: start: 20110912, end: 20110915

REACTIONS (2)
  - MUSCULAR WEAKNESS [None]
  - HYPOPHOSPHATAEMIA [None]
